FAERS Safety Report 12721931 (Version 2)
Quarter: 2016Q3

REPORT INFORMATION
  Report Type: Report from Study
  Country: ES (occurrence: ES)
  Receive Date: 20160907
  Receipt Date: 20160930
  Transmission Date: 20161109
  Serious: Yes (Hospitalization)
  Sender: FDA-Public Use
  Company Number: ES-TAIHO ONCOLOGY INC-US-2016-00114

PATIENT
  Age: 61 Year
  Sex: Male

DRUGS (1)
  1. TAS-102 [Suspect]
     Active Substance: TIPIRACIL HYDROCHLORIDE\TRIFLURIDINE
     Indication: OESOPHAGEAL ADENOCARCINOMA
     Dosage: CURRENT CYCLE 1
     Route: 048
     Dates: start: 20160812

REACTIONS (1)
  - Vomiting [Recovered/Resolved]

NARRATIVE: CASE EVENT DATE: 20160826
